FAERS Safety Report 8834719 (Version 1)
Quarter: 2012Q4

REPORT INFORMATION
  Report Type: 
  Country: FR (occurrence: FR)
  Receive Date: 20121010
  Receipt Date: 20121010
  Transmission Date: 20130627
  Serious: Yes (Hospitalization)
  Sender: FDA-Public Use
  Company Number: FR-ELI_LILLY_AND_COMPANY-FR201210000447

PATIENT
  Age: 58 Year
  Sex: Female

DRUGS (11)
  1. ALIMTA [Suspect]
     Indication: LARGE CELL CARCINOMA OF THE RESPIRATORY TRACT STAGE UNSPECIFIED
     Dosage: UNK, unknown
     Route: 042
     Dates: start: 20120308, end: 20120308
  2. CARBOPLATINE [Concomitant]
     Indication: LARGE CELL CARCINOMA OF THE RESPIRATORY TRACT STAGE UNSPECIFIED
     Dosage: UNK, unknown
     Route: 065
     Dates: start: 20120308, end: 20120308
  3. CARDENSIEL [Concomitant]
     Dosage: 5 mg, unknown
     Route: 065
     Dates: start: 2007
  4. SPECIAFOLDINE [Concomitant]
     Dosage: 0.4 mg, unknown
     Route: 065
  5. LIPANTHYL [Concomitant]
     Dosage: 160 mg, unknown
     Route: 065
  6. NITRIDERM [Concomitant]
     Dosage: 5 mg, unknown
     Route: 065
  7. LEVOTHYROX [Concomitant]
     Dosage: 125 ug, unknown
     Route: 065
  8. PREVISCAN [Concomitant]
     Dosage: 20 mg, unknown
     Route: 065
     Dates: end: 20120323
  9. IMOVANE [Concomitant]
     Dosage: UNK, unknown
     Route: 065
  10. ZOPHREN [Concomitant]
     Indication: PROPHYLAXIS OF NAUSEA AND VOMITING
     Dosage: UNK, unknown
     Route: 065
     Dates: start: 20120308, end: 20120308
  11. SOLUMEDROL [Concomitant]
     Dosage: UNK, unknown
     Route: 065

REACTIONS (10)
  - Toxic skin eruption [Recovered/Resolved]
  - Epidermal necrosis [Recovered/Resolved]
  - Pyrexia [Unknown]
  - Thrombocytopenia [Unknown]
  - Neutropenia [Unknown]
  - Rash pruritic [Recovered/Resolved]
  - Dermatitis exfoliative [Recovered/Resolved]
  - Rash pustular [Recovered/Resolved]
  - Oral mucosal eruption [Recovered/Resolved]
  - Creatinine renal clearance decreased [Unknown]
